FAERS Safety Report 14236052 (Version 1)
Quarter: 2017Q4

REPORT INFORMATION
  Report Type: Report from Study
  Country: CA (occurrence: CA)
  Receive Date: 20171129
  Receipt Date: 20171129
  Transmission Date: 20180321
  Serious: Yes (Hospitalization)
  Sender: FDA-Public Use
  Company Number: CA-TAKEDA-2017TUS018228

PATIENT
  Age: 35 Year
  Sex: Female

DRUGS (2)
  1. VEDOLIZUMAB [Suspect]
     Active Substance: VEDOLIZUMAB
     Indication: PRODUCT USED FOR UNKNOWN INDICATION
     Dosage: 300 MG, UNK
     Route: 042
     Dates: start: 20161215
  2. ENTOCORT [Concomitant]
     Active Substance: BUDESONIDE
     Dosage: UNK

REACTIONS (9)
  - Frequent bowel movements [Unknown]
  - Nausea [Unknown]
  - Weight decreased [Unknown]
  - Rectal haemorrhage [Unknown]
  - Mucous stools [Unknown]
  - Surgery [Unknown]
  - Hypophagia [Unknown]
  - Post procedural complication [Not Recovered/Not Resolved]
  - Small intestinal resection [Unknown]

NARRATIVE: CASE EVENT DATE: 2017
